FAERS Safety Report 22081261 (Version 1)
Quarter: 2023Q1

REPORT INFORMATION
  Report Type: Other
  Country: BE (occurrence: None)
  Receive Date: 20230309
  Receipt Date: 20230309
  Transmission Date: 20230417
  Serious: Yes (Other)
  Sender: FDA-Public Use
  Company Number: BE-Inventia-000269

PATIENT
  Age: 52 Year
  Sex: Male

DRUGS (1)
  1. OLMESARTAN [Suspect]
     Active Substance: OLMESARTAN
     Indication: Hypertension
     Dosage: 40 MG ONCE DAILY

REACTIONS (2)
  - Sprue-like enteropathy [Recovered/Resolved]
  - Cutaneous vasculitis [Recovered/Resolved]
